FAERS Safety Report 23256231 (Version 1)
Quarter: 2023Q4

REPORT INFORMATION
  Report Type: Spontaneous
  Country: US (occurrence: US)
  Receive Date: 20231204
  Receipt Date: 20231204
  Transmission Date: 20240110
  Serious: No
  Sender: FDA-Public Use
  Company Number: US-drreddys-SPO/USA/23/0187551

PATIENT
  Age: 11 Year
  Sex: Male

DRUGS (4)
  1. ESTRADIOL [Suspect]
     Active Substance: ESTRADIOL
     Indication: CDKL5 deficiency disorder
     Route: 048
  2. ESTRADIOL [Suspect]
     Active Substance: ESTRADIOL
     Dosage: TITRATED TO 2 MG WEEKLY
     Route: 048
  3. ESTRADIOL [Suspect]
     Active Substance: ESTRADIOL
     Route: 048
  4. ESTRADIOL [Suspect]
     Active Substance: ESTRADIOL
     Route: 048

REACTIONS (3)
  - Protein S decreased [Unknown]
  - Protein C decreased [Unknown]
  - Product use in unapproved indication [Unknown]
